FAERS Safety Report 19417235 (Version 1)
Quarter: 2021Q2

REPORT INFORMATION
  Report Type: Spontaneous
  Country: US (occurrence: US)
  Receive Date: 20210615
  Receipt Date: 20210615
  Transmission Date: 20210717
  Serious: Yes (Life-Threatening, Hospitalization, Other)
  Sender: FDA-Public Use
  Company Number: None

PATIENT
  Age: 32 Year
  Sex: Female
  Weight: 134 kg

DRUGS (4)
  1. REMDESIVIR. [Concomitant]
     Active Substance: REMDESIVIR
     Dates: start: 20210506, end: 20210510
  2. IV REGULAR INSULIN [Concomitant]
     Dates: start: 20210506, end: 20210508
  3. DEXAMETHASONE 6 MG [Concomitant]
     Dates: start: 20210508, end: 20210509
  4. TOCILIZUMAB. [Suspect]
     Active Substance: TOCILIZUMAB
     Indication: COVID-19
     Dosage: ?          OTHER FREQUENCY:ONCE;?
     Route: 042
     Dates: start: 20210507, end: 20210507

REACTIONS (2)
  - Staphylococcal bacteraemia [None]
  - Respiratory failure [None]

NARRATIVE: CASE EVENT DATE: 20210515
